FAERS Safety Report 21368770 (Version 1)
Quarter: 2022Q3

REPORT INFORMATION
  Report Type: Spontaneous
  Country: CA (occurrence: CA)
  Receive Date: 20220923
  Receipt Date: 20220923
  Transmission Date: 20221026
  Serious: Yes (Other)
  Sender: FDA-Public Use
  Company Number: CA-009507513-2209CAN005857

PATIENT
  Age: 54 Year
  Sex: Male

DRUGS (15)
  1. ISENTRESS [Interacting]
     Active Substance: RALTEGRAVIR POTASSIUM
     Indication: HIV infection
     Dosage: 400 MILLIGRAM, 1 EVERY 12 HOURS
     Route: 065
  2. BUPROPION [Interacting]
     Active Substance: BUPROPION
     Indication: Depression
     Dosage: UNK
     Route: 065
  3. BUPROPION [Interacting]
     Active Substance: BUPROPION
     Indication: Depression
     Dosage: UNK
     Route: 065
  4. CLONAZEPAM [Interacting]
     Active Substance: CLONAZEPAM
     Indication: Psychotic disorder
     Dosage: UNK
     Route: 065
  5. CLONAZEPAM [Interacting]
     Active Substance: CLONAZEPAM
     Indication: Depression
  6. QUETIAPINE [Interacting]
     Active Substance: QUETIAPINE
     Indication: Depression
     Dosage: UNK
     Route: 065
  7. SERTRALINE [Interacting]
     Active Substance: SERTRALINE HYDROCHLORIDE
     Indication: Depression
     Route: 065
  8. VALPROIC ACID [Interacting]
     Active Substance: VALPROIC ACID
     Indication: Depression
     Dosage: UNK
     Route: 065
  9. ZOPICLONE [Interacting]
     Active Substance: ZOPICLONE
     Indication: Depression
     Dosage: UNK
     Route: 065
  10. ZOPICLONE [Interacting]
     Active Substance: ZOPICLONE
     Indication: Depression
  11. ZOPICLONE [Interacting]
     Active Substance: ZOPICLONE
     Indication: Depression
     Dosage: UNK
  12. ATAZANAVIR [Concomitant]
     Active Substance: ATAZANAVIR
     Indication: HIV infection
  13. EFAVIRENZ [Concomitant]
     Active Substance: EFAVIRENZ
     Indication: HIV infection
  14. LAMIVUDINE [Concomitant]
     Active Substance: LAMIVUDINE
     Indication: HIV infection
  15. LOPINAVIR\RITONAVIR [Concomitant]
     Active Substance: LOPINAVIR\RITONAVIR
     Indication: HIV infection

REACTIONS (2)
  - Drug interaction [Recovered/Resolved]
  - Psychiatric decompensation [Recovered/Resolved]
